FAERS Safety Report 7016225-5 (Version None)
Quarter: 2010Q3

REPORT INFORMATION
  Report Type: 
  Country: None (occurrence: None)
  Receive Date: 20100927
  Receipt Date: 20091023
  Transmission Date: 20110219
  Serious: No
  Sender: FDA-Public Use
  Company Number: US-ASTRAZENECA-2009UW18543

PATIENT
  Age: 60 Year
  Sex: Female
  Weight: 82.6 kg

DRUGS (9)
  1. ARIMIDEX [Suspect]
     Indication: BREAST CANCER
     Route: 048
     Dates: start: 20090515
  2. ARIMIDEX [Suspect]
     Route: 048
     Dates: start: 20091002
  3. METOPROLOL TARTRATE [Concomitant]
  4. MULTI-VITAMINS [Concomitant]
  5. PROBIOTIC [Concomitant]
  6. VITAMIN B-12 [Concomitant]
  7. LEVOTHYROXINE SODIUM [Concomitant]
  8. HYDROCHLOROTHIAZIDE [Concomitant]
  9. HOLISTIC MEDICATION [Concomitant]

REACTIONS (23)
  - ANXIETY [None]
  - ARTHRALGIA [None]
  - BACK PAIN [None]
  - CHEST PAIN [None]
  - DEPRESSION [None]
  - DRY SKIN [None]
  - EYE SWELLING [None]
  - GAIT DISTURBANCE [None]
  - HYPERHIDROSIS [None]
  - IRRITABILITY [None]
  - JOINT SPRAIN [None]
  - JOINT STIFFNESS [None]
  - LETHARGY [None]
  - MOOD SWINGS [None]
  - OEDEMA PERIPHERAL [None]
  - PAIN [None]
  - PARAESTHESIA [None]
  - PRURITUS [None]
  - SENSATION OF HEAVINESS [None]
  - SKIN ATROPHY [None]
  - SOMNOLENCE [None]
  - THYROID FUNCTION TEST ABNORMAL [None]
  - VAGINAL HAEMORRHAGE [None]
